FAERS Safety Report 12381970 (Version 2)
Quarter: 2016Q4

REPORT INFORMATION
  Report Type: Report from Study
  Country: US (occurrence: US)
  Receive Date: 20160518
  Receipt Date: 20161031
  Transmission Date: 20170207
  Serious: Yes (Other)
  Sender: FDA-Public Use
  Company Number: US-MALLINCKRODT-T201601758

PATIENT
  Sex: Female
  Weight: 68 kg

DRUGS (3)
  1. SOLU-MEDROL [Concomitant]
     Active Substance: METHYLPREDNISOLONE SODIUM SUCCINATE
  2. REPOSITORY CORTICOTROPIN INJECTION [Suspect]
     Active Substance: CORTICOTROPIN
     Dosage: 1ML QD X5 DAYS EACH MONTH
     Route: 030
     Dates: start: 201503, end: 201506
  3. REPOSITORY CORTICOTROPIN INJECTION [Suspect]
     Active Substance: CORTICOTROPIN
     Indication: MULTIPLE SCLEROSIS
     Dosage: 1ML QD X5 DAYS EACH MONTH
     Route: 058
     Dates: start: 201503, end: 201506

REACTIONS (6)
  - Gait disturbance [Not Recovered/Not Resolved]
  - Fall [Unknown]
  - Joint dislocation [Unknown]
  - Asthenia [Recovered/Resolved]
  - Confusional state [Unknown]
  - Drug ineffective [Not Recovered/Not Resolved]

NARRATIVE: CASE EVENT DATE: 2015
